FAERS Safety Report 7775999-6 (Version None)
Quarter: 2011Q3

REPORT INFORMATION
  Report Type: 
  Country: None (occurrence: None)
  Receive Date: 20110923
  Receipt Date: 20110914
  Transmission Date: 20111222
  Serious: Yes (Other)
  Sender: FDA-Public Use
  Company Number: FR-GENENTECH-324767

PATIENT
  Sex: Male
  Weight: 92 kg

DRUGS (1)
  1. RANIBIZUMAB [Suspect]
     Indication: DIABETIC RETINAL OEDEMA
     Dosage: 10 MG/ML, UNKNOWN
     Route: 031
     Dates: start: 20110620

REACTIONS (1)
  - RETINAL DETACHMENT [None]
